FAERS Safety Report 15235461 (Version 1)
Quarter: 2018Q3

REPORT INFORMATION
  Report Type: Report from Study
  Country: None (occurrence: GB)
  Receive Date: 20180803
  Receipt Date: 20180803
  Transmission Date: 20181010
  Serious: Yes (Death)
  Sender: FDA-Public Use
  Company Number: GB-BIOVITRUM-UK135514

PATIENT
  Age: 61 Year
  Sex: Female
  Weight: 66 kg

DRUGS (11)
  1. SULFASALAZINE. [Concomitant]
     Active Substance: SULFASALAZINE
     Dates: start: 2002, end: 200410
  2. PANCREATIN [Concomitant]
     Active Substance: PANCRELIPASE
  3. ETORICOXIB. [Concomitant]
     Active Substance: ETORICOXIB
     Dates: start: 200410
  4. GAVISCON [Concomitant]
     Active Substance: ALUMINUM HYDROXIDE\MAGNESIUM CARBONATE
  5. PARACETAMOL [Concomitant]
     Active Substance: ACETAMINOPHEN
  6. ROFECOXIB [Concomitant]
     Active Substance: ROFECOXIB
  7. KINERET [Suspect]
     Active Substance: ANAKINRA
     Route: 058
     Dates: start: 20040617, end: 200410
  8. LEFLUNOMIDE. [Concomitant]
     Active Substance: LEFLUNOMIDE
  9. PANTOPRAZOLE [Concomitant]
     Active Substance: PANTOPRAZOLE
  10. DIHYDROCODEINE [Concomitant]
     Active Substance: DIHYDROCODEINE
  11. METHOTREXATE. [Concomitant]
     Active Substance: METHOTREXATE
     Route: 048
     Dates: start: 200406, end: 200410

REACTIONS (5)
  - Interstitial lung disease [Fatal]
  - Anaphylactic shock [Fatal]
  - Pneumonia [Fatal]
  - Lung disorder [Fatal]
  - Rheumatoid arthritis [Fatal]

NARRATIVE: CASE EVENT DATE: 20041030
